FAERS Safety Report 6914763-4 (Version None)
Quarter: 2010Q3

REPORT INFORMATION
  Report Type: 
  Country: None (occurrence: None)
  Receive Date: 20100804
  Receipt Date: 20100726
  Transmission Date: 20110219
  Serious: Yes (Other)
  Sender: FDA-Public Use
  Company Number: 2010US002659

PATIENT
  Age: 42 Year
  Sex: Female
  Weight: 96 kg

DRUGS (9)
  1. ADENOSCAN [Suspect]
     Indication: MYOCARDIAL ISCHAEMIA
     Dosage: 73.2 MG, TOTAL DOSE, IV NOS
     Route: 042
     Dates: start: 20100625, end: 20100625
  2. ADENOSCAN [Suspect]
     Indication: SCAN MYOCARDIAL PERFUSION
     Dosage: 73.2 MG, TOTAL DOSE, IV NOS
     Route: 042
     Dates: start: 20100625, end: 20100625
  3. ATENOLOL (ATENOLOL) FORMULATION UNKNOWN [Concomitant]
  4. WELCHOL (COLESEVELAM HYDROCHLORIDE) FORMULATION UNKNOWN [Concomitant]
  5. ASPIRIN (ACETYLSALICYLIC ACID) FORMULATION UNKNOWN [Concomitant]
  6. PRILOSEC (OMEPRAZOLE) FORMULATION UNKNOWN [Concomitant]
  7. LEXAPRO (ESCITALOPRAM OXALATE) FORMULATION UNKNOWN [Concomitant]
  8. HYDROCHLOROTHIAZIDE [Concomitant]
  9. MULTIVITAMIN (VITAMINS NOS) FORMULATION UNKNOWN [Concomitant]

REACTIONS (8)
  - BLOOD CREATINE PHOSPHOKINASE MB INCREASED [None]
  - CORONARY ARTERY DISEASE [None]
  - CORONARY ARTERY OCCLUSION [None]
  - DRUG HYPERSENSITIVITY [None]
  - DYSPEPSIA [None]
  - ELECTROCARDIOGRAM T WAVE ABNORMAL [None]
  - INFUSION RELATED REACTION [None]
  - LEFT ATRIAL DILATATION [None]
